FAERS Safety Report 13894501 (Version 1)
Quarter: 2017Q3

REPORT INFORMATION
  Report Type: Spontaneous
  Country: US (occurrence: None)
  Receive Date: 20170822
  Receipt Date: 20170822
  Transmission Date: 20171127
  Serious: No
  Sender: FDA-Public Use
  Company Number: None

PATIENT
  Sex: Male

DRUGS (1)
  1. ABILIFY GENERIC [Suspect]
     Active Substance: ARIPIPRAZOLE
     Route: 048
     Dates: start: 2016

REACTIONS (3)
  - Drug effect decreased [None]
  - Emotional disorder [None]
  - Crying [None]

NARRATIVE: CASE EVENT DATE: 2016
